FAERS Safety Report 8956072 (Version 1)
Quarter: 2012Q4

REPORT INFORMATION
  Report Type: 
  Country: US (occurrence: US)
  Receive Date: 20121210
  Receipt Date: 20121210
  Transmission Date: 20130627
  Serious: No
  Sender: FDA-Public Use
  Company Number: US-PFIZER INC-2012310088

PATIENT
  Age: 65 Year
  Sex: Female
  Weight: 81.63 kg

DRUGS (6)
  1. LYRICA [Suspect]
     Indication: BACK DISORDER
     Dosage: 150 mg, 2x/day
     Dates: start: 200712
  2. LYRICA [Suspect]
     Indication: NEUROPATHY
  3. NEURONTIN [Suspect]
     Indication: BACK DISORDER
     Dosage: 150 mg, 2x/day
     Dates: start: 200712
  4. NEURONTIN [Suspect]
     Indication: NEUROPATHY
  5. LISINOPRIL [Concomitant]
     Indication: BLOOD PRESSURE HIGH
     Dosage: 10 mg, daily
  6. CYMBALTA [Concomitant]
     Indication: BLOOD PRESSURE HIGH
     Dosage: 60 mg, daily

REACTIONS (1)
  - Hyperhidrosis [Not Recovered/Not Resolved]
